FAERS Safety Report 12739880 (Version 1)
Quarter: 2016Q3

REPORT INFORMATION
  Report Type: Spontaneous
  Country: US (occurrence: US)
  Receive Date: 20160910
  Receipt Date: 20160910
  Transmission Date: 20161109
  Serious: Yes (Hospitalization)
  Sender: FDA-Public Use
  Company Number: None

PATIENT
  Age: 47 Year
  Sex: Female
  Weight: 73.5 kg

DRUGS (2)
  1. TEMOZOLOMIDE. [Suspect]
     Active Substance: TEMOZOLOMIDE
     Dates: end: 20160708
  2. BACTRIM [Concomitant]
     Active Substance: SULFAMETHOXAZOLE\TRIMETHOPRIM

REACTIONS (7)
  - Hepatitis A virus test positive [None]
  - Hypersensitivity [None]
  - Aspartate aminotransferase increased [None]
  - Dermatitis exfoliative [None]
  - Alanine aminotransferase increased [None]
  - White blood cell count increased [None]
  - Blood lactic acid increased [None]

NARRATIVE: CASE EVENT DATE: 20160718
